FAERS Safety Report 7761425-X (Version None)
Quarter: 2011Q3

REPORT INFORMATION
  Report Type: 
  Country: None (occurrence: None)
  Receive Date: 20110920
  Receipt Date: 20110913
  Transmission Date: 20111222
  Serious: Yes (Other)
  Sender: FDA-Public Use
  Company Number: US-PERRIGO-11US007276

PATIENT
  Sex: Female
  Weight: 63.492 kg

DRUGS (4)
  1. SIMVASTATIN [Concomitant]
     Indication: BLOOD CHOLESTEROL INCREASED
     Dosage: UNK
     Route: 065
  2. CETIRIZINE HCL [Suspect]
     Indication: HYPERSENSITIVITY
     Dosage: 10 MG, QD
     Route: 048
     Dates: start: 20110825, end: 20110901
  3. ATENOLOL [Concomitant]
     Indication: HEART RATE INCREASED
     Dosage: UNK
     Route: 065
  4. ASPIRIN [Concomitant]
     Indication: PROPHYLAXIS

REACTIONS (7)
  - APHASIA [None]
  - DIZZINESS [None]
  - PRURITUS [None]
  - URTICARIA [None]
  - HYPERSENSITIVITY [None]
  - FEELING HOT [None]
  - DYSPNOEA [None]
